FAERS Safety Report 17354414 (Version 2)
Quarter: 2020Q3

REPORT INFORMATION
  Report Type: Spontaneous
  Country: US (occurrence: US)
  Receive Date: 20200131
  Receipt Date: 20200916
  Transmission Date: 20201102
  Serious: Yes (Other)
  Sender: FDA-Public Use
  Company Number: US-GILEAD-2020-0448738

PATIENT
  Age: 47 Year
  Sex: Male
  Weight: 86.18 kg

DRUGS (17)
  1. CLINDAMYCIN. [Concomitant]
     Active Substance: CLINDAMYCIN
  2. TRIZIVIR [Concomitant]
     Active Substance: ABACAVIR SULFATE\LAMIVUDINE\ZIDOVUDINE
  3. LEVOFLOXACIN. [Concomitant]
     Active Substance: LEVOFLOXACIN
  4. CEPHALEXIN AMEL [Concomitant]
     Active Substance: CEPHALEXIN
  5. TRUVADA [Suspect]
     Active Substance: EMTRICITABINE\TENOFOVIR DISOPROXIL FUMARATE
     Indication: HIV INFECTION
     Dosage: UNK
     Route: 048
     Dates: start: 200410, end: 20100604
  6. SULFAMETHOXAZOLE [Concomitant]
     Active Substance: SULFAMETHOXAZOLE
  7. LINEZOLID. [Concomitant]
     Active Substance: LINEZOLID
  8. TRUVADA [Suspect]
     Active Substance: EMTRICITABINE\TENOFOVIR DISOPROXIL FUMARATE
     Dosage: UNK
     Route: 048
     Dates: start: 20141029, end: 20181005
  9. KALETRA [Concomitant]
     Active Substance: LOPINAVIR\RITONAVIR
     Indication: HIV INFECTION
     Dosage: UNK
     Route: 065
     Dates: start: 20100504, end: 20100604
  10. KALETRA [Concomitant]
     Active Substance: LOPINAVIR\RITONAVIR
     Dosage: UNK
     Route: 065
     Dates: start: 20141030, end: 20180705
  11. AZITHROMYCIN ANHYDROUS. [Concomitant]
     Active Substance: AZITHROMYCIN ANHYDROUS
  12. CIPROFLOXACIN. [Concomitant]
     Active Substance: CIPROFLOXACIN
  13. OMEGA 3 [FISH OIL] [Concomitant]
     Active Substance: FISH OIL
  14. TRIUMEQ [Concomitant]
     Active Substance: ABACAVIR SULFATE\DOLUTEGRAVIR SODIUM\LAMIVUDINE
  15. CLARITHROMYCIN. [Concomitant]
     Active Substance: CLARITHROMYCIN
  16. DOXYCYCLINE. [Concomitant]
     Active Substance: DOXYCYCLINE
  17. GABAPENTIN. [Concomitant]
     Active Substance: GABAPENTIN

REACTIONS (17)
  - Emotional distress [Not Recovered/Not Resolved]
  - Pain in extremity [Not Recovered/Not Resolved]
  - Upper limb fracture [Recovered/Resolved]
  - Ankle fracture [Recovered/Resolved]
  - Tibia fracture [Recovered/Resolved]
  - Economic problem [Not Recovered/Not Resolved]
  - Fall [Unknown]
  - Osteoarthritis [Unknown]
  - Lethargy [Not Recovered/Not Resolved]
  - Chronic kidney disease [Recovered/Resolved]
  - Renal failure [Not Recovered/Not Resolved]
  - Foot fracture [Recovered/Resolved]
  - Anhedonia [Not Recovered/Not Resolved]
  - Renal impairment [Not Recovered/Not Resolved]
  - Anxiety [Not Recovered/Not Resolved]
  - Pain [Not Recovered/Not Resolved]
  - Osteoporosis [Not Recovered/Not Resolved]

NARRATIVE: CASE EVENT DATE: 201612
